FAERS Safety Report 8353961-2 (Version None)
Quarter: 2012Q2

REPORT INFORMATION
  Report Type: 
  Country: None (occurrence: None)
  Receive Date: 20120509
  Receipt Date: 20120507
  Transmission Date: 20120825
  Serious: Yes (Hospitalization, Other)
  Sender: FDA-Public Use
  Company Number: 2011SP006211

PATIENT
  Age: 32 Year
  Sex: Female
  Weight: 156.9446 kg

DRUGS (5)
  1. CARDIAZEM [Concomitant]
  2. NUVARING [Suspect]
     Indication: CONTRACEPTION
     Dosage: 1 DF; QM; VAG
     Route: 067
     Dates: start: 20081001, end: 20090201
  3. NUVARING [Suspect]
     Indication: MENSTRUAL DISORDER
     Dosage: 1 DF; QM; VAG
     Route: 067
     Dates: start: 20081001, end: 20090201
  4. ASPIRIN [Concomitant]
  5. CARTOA XT [Concomitant]

REACTIONS (18)
  - AMENORRHOEA [None]
  - INTERVERTEBRAL DISC DEGENERATION [None]
  - BACK PAIN [None]
  - DYSMENORRHOEA [None]
  - DILATATION VENTRICULAR [None]
  - RENAL CYST [None]
  - ATRIAL SEPTAL DEFECT [None]
  - INTERNATIONAL NORMALISED RATIO DECREASED [None]
  - HAEMATURIA [None]
  - HYPERCOAGULATION [None]
  - MITRAL VALVE INCOMPETENCE [None]
  - PULMONARY EMBOLISM [None]
  - PRODUCT QUALITY ISSUE [None]
  - SLEEP APNOEA SYNDROME [None]
  - ASTHMA [None]
  - INSOMNIA [None]
  - HEADACHE [None]
  - FATIGUE [None]
